FAERS Safety Report 6887289-4 (Version None)
Quarter: 2010Q3

REPORT INFORMATION
  Report Type: 
  Country: None (occurrence: None)
  Receive Date: 20100730
  Receipt Date: 20091109
  Transmission Date: 20110219
  Serious: No
  Sender: FDA-Public Use
  Company Number: A0775336A

PATIENT
  Age: 55 Year
  Sex: Female

DRUGS (5)
  1. SUMATRIPTAN SUCCINATE [Suspect]
     Indication: MIGRAINE
     Dosage: 100MG AS REQUIRED
     Route: 048
     Dates: start: 20090123, end: 20090324
  2. TRIAMTERENE [Concomitant]
  3. METOPROLOL TARTRATE [Concomitant]
  4. ACIPHEX [Concomitant]
  5. GLUCOSAMINE [Concomitant]

REACTIONS (4)
  - ABNORMAL DREAMS [None]
  - AURA [None]
  - CHEST DISCOMFORT [None]
  - DRUG INEFFECTIVE [None]
